FAERS Safety Report 7765357-2 (Version None)
Quarter: 2011Q3

REPORT INFORMATION
  Report Type: 
  Country: None (occurrence: None)
  Receive Date: 20110921
  Receipt Date: 20110919
  Transmission Date: 20111222
  Serious: Yes (Hospitalization)
  Sender: FDA-Public Use
  Company Number: CHPA2011US12444

PATIENT
  Age: 76 Year
  Sex: Female

DRUGS (4)
  1. LORTAB [Concomitant]
     Indication: PAIN
     Route: 048
  2. VOLTAREN [Suspect]
     Indication: ARTHRALGIA
     Dosage: 2-4 GRAMS QID
     Route: 061
     Dates: start: 20110201
  3. ABSORBINE JR [Concomitant]
     Indication: PAIN
     Route: 061
  4. DRUG THERAPY NOS [Concomitant]
     Indication: BLOOD PRESSURE
     Route: 048

REACTIONS (7)
  - CHILLS [None]
  - TREMOR [None]
  - JOINT SWELLING [None]
  - INSOMNIA [None]
  - PSYCHOMOTOR HYPERACTIVITY [None]
  - OFF LABEL USE [None]
  - SKIN DISCOLOURATION [None]
